FAERS Safety Report 5934580-1 (Version None)
Quarter: 2008Q4

REPORT INFORMATION
  Report Type: 
  Country: None (occurrence: None)
  Receive Date: 20081029
  Receipt Date: 20081021
  Transmission Date: 20090506
  Serious: Yes (Other)
  Sender: FDA-Public Use
  Company Number: CA-PFIZER INC-2008084229

PATIENT
  Age: 75 Year
  Sex: Female

DRUGS (4)
  1. XALATAN [Suspect]
     Dates: start: 20080618
  2. ACETYLSALICYLIC ACID SRT [Concomitant]
  3. LIPITOR [Concomitant]
  4. METFORMIN HYDROCHLORIDE [Concomitant]

REACTIONS (6)
  - CATARACT [None]
  - MACULAR DEGENERATION [None]
  - MACULAR OEDEMA [None]
  - RETINAL VASCULAR DISORDER [None]
  - VISION BLURRED [None]
  - VISUAL ACUITY REDUCED [None]
